FAERS Safety Report 24638139 (Version 2)
Quarter: 2024Q4

REPORT INFORMATION
  Report Type: Spontaneous
  Country: US (occurrence: US)
  Receive Date: 20241119
  Receipt Date: 20241202
  Transmission Date: 20250114
  Serious: No
  Sender: NIVAGEN PHARMACEUTICALS INC
  Company Number: US-NPI-000052

PATIENT
  Sex: Male

DRUGS (1)
  1. CALCIUM GLUCONATE [Suspect]
     Active Substance: CALCIUM GLUCONATE
     Indication: Product used for unknown indication
     Route: 048

REACTIONS (4)
  - Off label use [Unknown]
  - Liquid product physical issue [Unknown]
  - Product dispensing error [Unknown]
  - Incorrect route of product administration [Unknown]
